FAERS Safety Report 24853655 (Version 1)
Quarter: 2025Q1

REPORT INFORMATION
  Report Type: Spontaneous
  Country: US (occurrence: US)
  Receive Date: 20250117
  Receipt Date: 20250117
  Transmission Date: 20250409
  Serious: No
  Sender: AMGEN
  Company Number: US-AMGEN-USASP2024255923

PATIENT
  Age: 82 Year
  Sex: Female

DRUGS (3)
  1. ENBREL [Suspect]
     Active Substance: ETANERCEPT
     Indication: Rheumatoid arthritis
     Dosage: 50 MILLIGRAM, QWK
     Route: 058
     Dates: start: 2024
  2. ENBREL [Suspect]
     Active Substance: ETANERCEPT
     Indication: Scoliosis
  3. ENBREL [Suspect]
     Active Substance: ETANERCEPT
     Indication: Osteoarthritis

REACTIONS (2)
  - Headache [Unknown]
  - Device difficult to use [Unknown]

NARRATIVE: CASE EVENT DATE: 20241223
